FAERS Safety Report 8064511-2 (Version None)
Quarter: 2012Q1

REPORT INFORMATION
  Report Type: 
  Country: None (occurrence: None)
  Receive Date: 20120123
  Receipt Date: 20120119
  Transmission Date: 20120608
  Serious: Yes (Other)
  Sender: FDA-Public Use
  Company Number: US-PFIZER INC-2012009557

PATIENT
  Age: 72 Year
  Sex: Male

DRUGS (10)
  1. METOPROLOL [Concomitant]
  2. ACETYLSALICYLIC ACID [Concomitant]
  3. LISINOPRIL [Concomitant]
  4. METFORMIN [Concomitant]
  5. ATORVASTATIN [Concomitant]
  6. ASCORBIC ACID [Concomitant]
  7. GLYBURIDE [Concomitant]
  8. SUNITINIB MALATE [Suspect]
     Indication: METASTATIC RENAL CELL CARCINOMA
     Dosage: 50 MG, 1X/DAY 4 WEEKS ON 2 WEEKS OFF
     Route: 048
  9. AMLODIPINE [Concomitant]
  10. FISH OIL [Concomitant]

REACTIONS (2)
  - VASCULITIS [None]
  - RENAL FAILURE ACUTE [None]
